FAERS Safety Report 15963311 (Version 5)
Quarter: 2019Q3

REPORT INFORMATION
  Report Type: Report from Study
  Country: US (occurrence: US)
  Receive Date: 20190214
  Receipt Date: 20190814
  Transmission Date: 20191004
  Serious: Yes (Hospitalization, Other)
  Sender: FDA-Public Use
  Company Number: US-B.I. PHARMACEUTICALS,INC./RIDGEFIELD-2018-BI-006702

PATIENT
  Age: 71 Year
  Sex: Female

DRUGS (3)
  1. OFEV [Suspect]
     Active Substance: NINTEDANIB
     Indication: IDIOPATHIC PULMONARY FIBROSIS
     Route: 048
     Dates: start: 20180130, end: 20190208
  2. ASPIRIN. [Concomitant]
     Active Substance: ASPIRIN
     Indication: PRODUCT USED FOR UNKNOWN INDICATION
     Route: 065
  3. OFEV [Suspect]
     Active Substance: NINTEDANIB
     Route: 048

REACTIONS (26)
  - Pneumonia [Recovered/Resolved]
  - Vomiting [Unknown]
  - Haemorrhoidal haemorrhage [Not Recovered/Not Resolved]
  - Abdominal discomfort [Unknown]
  - Haematochezia [Unknown]
  - Oxygen saturation decreased [Recovered/Resolved]
  - Constipation [Not Recovered/Not Resolved]
  - Dyspnoea [Unknown]
  - Vomiting [Recovered/Resolved]
  - Pyrexia [Recovered/Resolved]
  - Nausea [Recovered/Resolved]
  - Sputum discoloured [Unknown]
  - Malaise [Unknown]
  - Contusion [Not Recovered/Not Resolved]
  - Contusion [Unknown]
  - Decreased appetite [Not Recovered/Not Resolved]
  - Oxygen saturation abnormal [Unknown]
  - Contusion [Unknown]
  - Pneumonia [Unknown]
  - Blood pressure decreased [Recovered/Resolved]
  - Dry mouth [Not Recovered/Not Resolved]
  - Sepsis [Unknown]
  - Haematochezia [Unknown]
  - Weight decreased [Not Recovered/Not Resolved]
  - Productive cough [Unknown]
  - Oxygen saturation increased [Not Recovered/Not Resolved]

NARRATIVE: CASE EVENT DATE: 20180202
